FAERS Safety Report 9110440 (Version 1)
Quarter: 2013Q1

REPORT INFORMATION
  Report Type: Spontaneous
  Country: US (occurrence: US)
  Receive Date: 20130219
  Receipt Date: 20130219
  Transmission Date: 20140127
  Serious: Yes (Other)
  Sender: FDA-Public Use
  Company Number: US-BRACCO-007476

PATIENT
  Age: 38 Year
  Sex: Female

DRUGS (4)
  1. METFORMIN [Concomitant]
  2. ISOVUE [Suspect]
     Indication: COMPUTERISED TOMOGRAM
     Route: 042
     Dates: start: 20120201, end: 20120201
  3. ISOVUE [Suspect]
     Indication: PYREXIA
     Route: 042
     Dates: start: 20120201, end: 20120201
  4. ISOVUE [Suspect]
     Indication: ABDOMINAL PAIN LOWER
     Route: 042
     Dates: start: 20120201, end: 20120201

REACTIONS (1)
  - Hypersensitivity [Recovered/Resolved]
